FAERS Safety Report 6381590-9 (Version None)
Quarter: 2009Q3

REPORT INFORMATION
  Report Type: 
  Country: None (occurrence: None)
  Receive Date: 20090925
  Receipt Date: 20090914
  Transmission Date: 20100115
  Serious: Yes (Death)
  Sender: FDA-Public Use
  Company Number: BVT-000293

PATIENT
  Sex: Female

DRUGS (13)
  1. KINERET [Suspect]
     Indication: RHEUMATOID ARTHRITIS
     Dates: start: 20060508, end: 20060524
  2. FUROSEMIDE [Concomitant]
  3. ATORVASTATIN [Concomitant]
  4. FERROUS SOLPHATE /00023503/ [Concomitant]
  5. INSULIN NOVOMIX /02607201/ [Concomitant]
  6. LACTULOSE [Concomitant]
  7. ACETAMINOPHEN [Concomitant]
  8. LEFLUNOMIDE [Concomitant]
  9. PREDNISOLONE [Concomitant]
  10. WARFARIN [Concomitant]
  11. DOCUSATE SODIUM [Concomitant]
  12. MORPHINE [Concomitant]
  13. QUININE [Concomitant]

REACTIONS (3)
  - BRONCHOPNEUMONIA [None]
  - PERIPHERAL ISCHAEMIA [None]
  - PERIPHERAL VASCULAR DISORDER [None]
